FAERS Safety Report 14564220 (Version 2)
Quarter: 2018Q2

REPORT INFORMATION
  Report Type: Spontaneous
  Country: JP (occurrence: JP)
  Receive Date: 20180222
  Receipt Date: 20180405
  Transmission Date: 20180711
  Serious: Yes (Death)
  Sender: FDA-Public Use
  Company Number: JP-PFIZER INC-2018036855

PATIENT
  Age: 48 Year
  Sex: Female
  Weight: 57 kg

DRUGS (3)
  1. FASLODEX [Concomitant]
     Active Substance: FULVESTRANT
     Dosage: 500 MG, ONCE DAILY
     Route: 030
     Dates: start: 20180116
  2. IBRANCE [Suspect]
     Active Substance: PALBOCICLIB
     Indication: METASTASES TO LIVER
     Dosage: 125 MG, DAILY
     Route: 048
     Dates: start: 20180116, end: 20180124
  3. LEUPLIN [Concomitant]
     Active Substance: LEUPROLIDE ACETATE
     Dosage: UNK

REACTIONS (4)
  - Neutrophil count decreased [Unknown]
  - Blood bilirubin increased [Unknown]
  - Neoplasm progression [Fatal]
  - Thirst [Unknown]
